FAERS Safety Report 20219391 (Version 2)
Quarter: 2022Q1

REPORT INFORMATION
  Report Type: Spontaneous
  Country: IT (occurrence: IT)
  Receive Date: 20211222
  Receipt Date: 20220119
  Transmission Date: 20220423
  Serious: Yes (Other)
  Sender: FDA-Public Use
  Company Number: None

PATIENT
  Age: 84 Year
  Sex: Male

DRUGS (12)
  1. LINAGLIPTIN [Suspect]
     Active Substance: LINAGLIPTIN
     Indication: Diabetes mellitus
     Route: 048
     Dates: start: 20210101, end: 20211217
  2. SIMVASTATIN [Concomitant]
     Active Substance: SIMVASTATIN
     Indication: Product used for unknown indication
  3. TAMSULOSINA ABC 0,4 MG CAPSULE RIGIDE A RILASCIO MODIFICATO [Concomitant]
     Indication: Product used for unknown indication
  4. LOSARTAN AHCL 100 MG COMPRESSE RIVESTITE CON FILM [Concomitant]
     Indication: Product used for unknown indication
  5. FEBUXOSTAT [Concomitant]
     Active Substance: FEBUXOSTAT
     Indication: Product used for unknown indication
  6. FERRO GRAD FOLIC [Concomitant]
     Indication: Product used for unknown indication
  7. LASIX [Concomitant]
     Active Substance: FUROSEMIDE
     Indication: Product used for unknown indication
  8. ASPIRIN [Concomitant]
     Active Substance: ASPIRIN
     Indication: Product used for unknown indication
  9. RANEXA [Concomitant]
     Active Substance: RANOLAZINE
     Indication: Product used for unknown indication
  10. ATENOLOLO AHCL 50 MG COMPRESSE [Concomitant]
     Indication: Product used for unknown indication
  11. LUCEN 20 MG COMPRESSE GASTRORESISTENTI [Concomitant]
     Indication: Product used for unknown indication
  12. ARANESP 40 MICROGRAMS SOLUTION FOR INJECTION IN PRE-FILLED SYRINGE [Concomitant]
     Indication: Product used for unknown indication

REACTIONS (2)
  - Pruritus [Recovering/Resolving]
  - Pemphigoid [Recovering/Resolving]

NARRATIVE: CASE EVENT DATE: 20211217
